FAERS Safety Report 20714232 (Version 1)
Quarter: 2022Q2

REPORT INFORMATION
  Report Type: Report from Study
  Country: CO (occurrence: CO)
  Receive Date: 20220415
  Receipt Date: 20220415
  Transmission Date: 20220721
  Serious: Yes (Other)
  Sender: FDA-Public Use
  Company Number: CO-NOVARTISPH-NVSC2022CO086177

PATIENT
  Sex: Female
  Weight: 101 kg

DRUGS (3)
  1. LOSARTAN [Suspect]
     Active Substance: LOSARTAN
     Indication: Hypertension
     Dosage: UNK, Q12H (DOSE DID NOT REMEMBER, STARTED MORE THAN 5 YEARS AGO)
     Route: 048
  2. METFORMIN [Suspect]
     Active Substance: METFORMIN HYDROCHLORIDE
     Indication: Diabetes mellitus
     Dosage: 850 MG, Q12H, STARTED 6 YEARS AGO
     Route: 058
  3. VICTOZA [Concomitant]
     Active Substance: LIRAGLUTIDE
     Indication: Diabetes mellitus
     Dosage: 22 IU, QD (START 6 YEARS AGO)
     Route: 058

REACTIONS (5)
  - Breast cancer [Unknown]
  - Breast cancer metastatic [Unknown]
  - Hormone receptor positive HER2 negative breast cancer [Unknown]
  - Product use in unapproved indication [Unknown]
  - Off label use [Unknown]
